FAERS Safety Report 9726844 (Version 3)
Quarter: 2014Q1

REPORT INFORMATION
  Report Type: Report from Study
  Country: FR (occurrence: FR)
  Receive Date: 20131203
  Receipt Date: 20140113
  Transmission Date: 20141002
  Serious: Yes (Hospitalization)
  Sender: FDA-Public Use
  Company Number: PHHO2013FR015573

PATIENT
  Sex: 0

DRUGS (4)
  1. NEORAL [Suspect]
     Indication: PROPHYLAXIS AGAINST TRANSPLANT REJECTION
     Dosage: 250 MG, QD
     Route: 002
     Dates: start: 20120604
  2. RAD 666 / RAD 001A [Suspect]
     Indication: PROPHYLAXIS AGAINST TRANSPLANT REJECTION
     Dosage: 4 MG, QD
     Route: 002
     Dates: start: 20120419, end: 20120501
  3. CELLCEPT [Suspect]
     Indication: PROPHYLAXIS AGAINST TRANSPLANT REJECTION
     Dosage: 1 G, TID
     Route: 002
     Dates: start: 20120414
  4. CORTANCYL [Suspect]
     Indication: PROPHYLAXIS AGAINST TRANSPLANT REJECTION
     Dosage: 10 MG, BID
     Route: 002
     Dates: start: 20120414

REACTIONS (8)
  - Urinary retention [Recovered/Resolved]
  - Urinoma [Recovered/Resolved]
  - Impaired healing [Recovering/Resolving]
  - Urinary tract infection [Recovered/Resolved]
  - Renal failure acute [Recovered/Resolved]
  - Pseudomonal bacteraemia [Recovering/Resolving]
  - Complications of transplanted kidney [Unknown]
  - Renal lymphocele [Recovered/Resolved]
